FAERS Safety Report 9700713 (Version 2)
Quarter: 2013Q4

REPORT INFORMATION
  Report Type: Spontaneous
  Country: FR (occurrence: None)
  Receive Date: 20131119
  Receipt Date: 20131121
  Transmission Date: 20140711
  Serious: Yes (Hospitalization)
  Sender: FDA-Public Use
  Company Number: DSM-2013-01076

PATIENT
  Age: 61 Year
  Sex: Male

DRUGS (1)
  1. AXELER [Suspect]
     Indication: PRODUCT USED FOR UNKNOWN INDICATION
     Route: 048
     Dates: start: 201106, end: 201307

REACTIONS (16)
  - Diarrhoea [None]
  - Nausea [None]
  - Vomiting [None]
  - Hypotension [None]
  - Anxiety [None]
  - Prerenal failure [None]
  - Hyponatraemia [None]
  - Leukocytosis [None]
  - Hypokalaemia [None]
  - Malnutrition [None]
  - Hypoproteinaemia [None]
  - Lymphopenia [None]
  - Anaemia [None]
  - Drug ineffective [None]
  - Colitis ulcerative [None]
  - Haemorrhoids thrombosed [None]
